FAERS Safety Report 9614506 (Version 3)
Quarter: 2013Q4

REPORT INFORMATION
  Report Type: Spontaneous
  Country: DE (occurrence: DE)
  Receive Date: 20131011
  Receipt Date: 20131022
  Transmission Date: 20140711
  Serious: Yes (Other)
  Sender: FDA-Public Use
  Company Number: DE-BAYER-2013-120371

PATIENT
  Age: 41 Year
  Sex: Female
  Weight: 127 kg

DRUGS (1)
  1. MIRENA [Suspect]
     Dosage: 20 MCG/24HR, CONT
     Route: 015
     Dates: start: 20111122

REACTIONS (4)
  - Pregnancy with contraceptive device [Recovered/Resolved]
  - Device expulsion [Not Recovered/Not Resolved]
  - Drug ineffective [None]
  - Breech presentation [Recovered/Resolved]
